FAERS Safety Report 5237229-9 (Version None)
Quarter: 2007Q1

REPORT INFORMATION
  Report Type: 
  Country: None (occurrence: None)
  Receive Date: 20070213
  Receipt Date: 20070208
  Transmission Date: 20070707
  Serious: Yes (Hospitalization)
  Sender: FDA-Public Use
  Company Number: US-MERCK-0702USA01214

PATIENT
  Age: 72 Year
  Sex: Male

DRUGS (2)
  1. JANUVIA [Suspect]
     Indication: DIABETES MELLITUS
     Route: 048
  2. INSULIN [Concomitant]
     Route: 065

REACTIONS (2)
  - ANGIOEDEMA [None]
  - RASH [None]
